FAERS Safety Report 20364281 (Version 1)
Quarter: 2022Q1

REPORT INFORMATION
  Report Type: Report from Study
  Country: US (occurrence: US)
  Receive Date: 20220121
  Receipt Date: 20220121
  Transmission Date: 20220424
  Serious: Yes (Hospitalization, Other)
  Sender: FDA-Public Use
  Company Number: US-GILEAD-2022-0565481

PATIENT
  Sex: Female

DRUGS (1)
  1. SACITUZUMAB GOVITECAN [Suspect]
     Active Substance: SACITUZUMAB GOVITECAN
     Indication: Breast cancer female
     Dosage: 900 MG, DAYS 1 AND 8 EVERY 21 DAYS
     Route: 042
     Dates: start: 20211210

REACTIONS (1)
  - Disease progression [Not Recovered/Not Resolved]
